FAERS Safety Report 23251195 (Version 7)
Quarter: 2024Q2

REPORT INFORMATION
  Report Type: Spontaneous
  Country: US (occurrence: US)
  Receive Date: 20231201
  Receipt Date: 20240402
  Transmission Date: 20240716
  Serious: No
  Sender: FDA-Public Use
  Company Number: US-PFIZER INC-PV202300191458

PATIENT
  Age: 5 Year
  Sex: Male
  Weight: 16.054 kg

DRUGS (3)
  1. GENOTROPIN [Suspect]
     Active Substance: SOMATROPIN
     Indication: Silver-Russell syndrome
     Dosage: 0.6 MG
     Dates: start: 202210
  2. GENOTROPIN [Suspect]
     Active Substance: SOMATROPIN
     Dosage: 0.4 MG, DAILY
  3. GENOTROPIN [Suspect]
     Active Substance: SOMATROPIN
     Dosage: 0.6 MG, ONCE 6X/WK
     Route: 030

REACTIONS (4)
  - Off label use [Unknown]
  - Device breakage [Unknown]
  - Device use error [Unknown]
  - Drug dose omission by device [Unknown]
